FAERS Safety Report 5327325-X (Version None)
Quarter: 2007Q2

REPORT INFORMATION
  Report Type: 
  Country: None (occurrence: None)
  Receive Date: 20070517
  Receipt Date: 20070507
  Transmission Date: 20071010
  Serious: Yes (Hospitalization)
  Sender: FDA-Public Use
  Company Number: US-AMGEN-US217902

PATIENT
  Sex: Male

DRUGS (14)
  1. PANITUMUMAB [Suspect]
     Indication: COLORECTAL CANCER
     Route: 042
     Dates: start: 20060201
  2. AVASTIN [Suspect]
     Route: 042
  3. TIMOPTIC [Concomitant]
     Route: 047
  4. TYLENOL [Concomitant]
     Route: 048
  5. BENADRYL [Concomitant]
     Route: 042
  6. ALOXI [Concomitant]
     Route: 042
  7. DECADRON [Concomitant]
     Route: 042
  8. VITAMIN CAP [Concomitant]
     Route: 048
  9. TEMOVATE [Concomitant]
     Route: 061
     Dates: start: 20060301
  10. OXALIPLATIN [Concomitant]
     Route: 042
  11. LEUCOVORIN CALCIUM [Concomitant]
     Route: 042
  12. FLUOROURACIL [Concomitant]
     Route: 042
  13. MAGNESIUM SULFATE [Concomitant]
     Route: 042
  14. CALCIUM CHLORIDE [Concomitant]
     Route: 042

REACTIONS (5)
  - GASTRIC VARICES [None]
  - GASTROINTESTINAL HAEMORRHAGE [None]
  - HAEMATOCRIT DECREASED [None]
  - HAEMOGLOBIN DECREASED [None]
  - PLATELET COUNT DECREASED [None]
